FAERS Safety Report 21274236 (Version 1)
Quarter: 2022Q3

REPORT INFORMATION
  Report Type: Spontaneous
  Country: PL (occurrence: PL)
  Receive Date: 20220831
  Receipt Date: 20220831
  Transmission Date: 20221027
  Serious: Yes (Other)
  Sender: FDA-Public Use
  Company Number: PL-GUERBET-PL-20210017

PATIENT
  Age: 37 Year
  Sex: Female

DRUGS (5)
  1. LIPIODOL [Suspect]
     Active Substance: ETHIODIZED OIL
     Indication: Hysterosalpingogram
     Route: 065
     Dates: start: 20210927, end: 20210927
  2. LEVOTHYROXINE SODIUM [Concomitant]
     Active Substance: LEVOTHYROXINE SODIUM
     Indication: Product used for unknown indication
     Route: 065
  3. DOSTINEX [Concomitant]
     Active Substance: CABERGOLINE
     Indication: Product used for unknown indication
     Route: 065
  4. UTROGESTAN [Concomitant]
     Active Substance: PROGESTERONE
     Indication: Product used for unknown indication
     Route: 065
  5. GLUCOPHAGE [Concomitant]
     Active Substance: METFORMIN HYDROCHLORIDE
     Indication: Product used for unknown indication
     Route: 065

REACTIONS (4)
  - Placenta accreta [Recovered/Resolved]
  - Therapeutic response unexpected [Recovered/Resolved]
  - Maternal exposure before pregnancy [Recovered/Resolved]
  - Haemorrhage in pregnancy [Recovered/Resolved]
